FAERS Safety Report 15107276 (Version 1)
Quarter: 2018Q3

REPORT INFORMATION
  Report Type: Spontaneous
  Country: BR (occurrence: BR)
  Receive Date: 20180704
  Receipt Date: 20180704
  Transmission Date: 20181010
  Serious: Yes (Other)
  Sender: FDA-Public Use
  Company Number: BR-GLAXOSMITHKLINE-BR2018GSK118196

PATIENT
  Sex: Male
  Weight: 68 kg

DRUGS (2)
  1. DUOMO HP [Concomitant]
     Indication: PROSTATIC DISORDER
     Dosage: 1 DF, QD
     Route: 048
  2. VANISTO [Suspect]
     Active Substance: UMECLIDINIUM BROMIDE
     Indication: CHRONIC OBSTRUCTIVE PULMONARY DISEASE
     Dosage: 1 PUFF(S), QD

REACTIONS (1)
  - Urinary retention [Unknown]
